FAERS Safety Report 5286862-7 (Version None)
Quarter: 2007Q2

REPORT INFORMATION
  Report Type: 
  Country: None (occurrence: None)
  Receive Date: 20070404
  Receipt Date: 20070326
  Transmission Date: 20071010
  Serious: Yes (Hospitalization, Other)
  Sender: FDA-Public Use
  Company Number: FR-ABBOTT-07P-056-0363032-00

PATIENT
  Age: 69 Year
  Sex: Male

DRUGS (11)
  1. SEVOFLURANE [Suspect]
     Indication: DRUG USE FOR UNKNOWN INDICATION
  2. NIMBEX [Suspect]
     Indication: DRUG USE FOR UNKNOWN INDICATION
  3. ORUDIS [Suspect]
     Indication: POSTOPERATIVE ANALGESIA
  4. ATRACURIUM BESYLATE [Suspect]
     Indication: DRUG USE FOR UNKNOWN INDICATION
  5. CLAVULIN [Suspect]
     Indication: DRUG USE FOR UNKNOWN INDICATION
  6. CIPROFLOXACIN [Suspect]
     Indication: DRUG USE FOR UNKNOWN INDICATION
  7. PROPOFOL [Suspect]
     Indication: DRUG USE FOR UNKNOWN INDICATION
  8. SUFENTANIL CITRATE [Suspect]
     Indication: DRUG USE FOR UNKNOWN INDICATION
  9. BACTRIM [Suspect]
     Indication: DRUG USE FOR UNKNOWN INDICATION
  10. VORICONAZOLE [Suspect]
     Indication: DRUG USE FOR UNKNOWN INDICATION
  11. ITRACONAZOLE [Suspect]
     Indication: DRUG USE FOR UNKNOWN INDICATION

REACTIONS (18)
  - ANAEMIA [None]
  - ARTHRALGIA [None]
  - CHILLS [None]
  - EMBOLISM [None]
  - ERYTHEMA [None]
  - GENERAL PHYSICAL HEALTH DETERIORATION [None]
  - INFLAMMATION [None]
  - INTERSTITIAL LUNG DISEASE [None]
  - LYMPHADENOPATHY [None]
  - LYMPHOPENIA [None]
  - PERIPHERAL ISCHAEMIA [None]
  - PITYRIASIS [None]
  - PROTEINURIA [None]
  - PULMONARY EMBOLISM [None]
  - PULSE ABSENT [None]
  - PYREXIA [None]
  - RALES [None]
  - TOXIC SKIN ERUPTION [None]
